FAERS Safety Report 6744689-0 (Version None)
Quarter: 2010Q2

REPORT INFORMATION
  Report Type: 
  Country: None (occurrence: None)
  Receive Date: 20100527
  Receipt Date: 20100520
  Transmission Date: 20101027
  Serious: Yes (Congenital Anomaly)
  Sender: FDA-Public Use
  Company Number: FR-GILEAD-2010-0028944

PATIENT
  Sex: Female

DRUGS (2)
  1. TRUVADA [Suspect]
     Indication: PROPHYLAXIS AGAINST HIV INFECTION
     Route: 064
     Dates: start: 20070115
  2. KALETRA [Concomitant]
     Indication: PROPHYLAXIS AGAINST HIV INFECTION
     Route: 064
     Dates: start: 20070115

REACTIONS (3)
  - ARNOLD-CHIARI MALFORMATION [None]
  - CEREBRAL VENTRICLE DILATATION [None]
  - SPINA BIFIDA [None]
